FAERS Safety Report 4291240-3 (Version None)
Quarter: 2004Q1

REPORT INFORMATION
  Report Type: 
  Country: None (occurrence: None)
  Receive Date: 20040211
  Receipt Date: 20031119
  Transmission Date: 20041129
  Serious: No
  Sender: FDA-Public Use
  Company Number: US-GLAXOSMITHKLINE-A0440348A

PATIENT
  Age: 66 Year
  Sex: Female

DRUGS (6)
  1. PAXIL [Suspect]
     Dosage: 20MG PER DAY
     Route: 048
     Dates: start: 20010101
  2. DILANTIN [Suspect]
  3. FEMARA [Concomitant]
  4. SYNTHROID [Concomitant]
  5. DYAZIDE [Concomitant]
  6. INDERAL [Concomitant]

REACTIONS (1)
  - ALOPECIA [None]
